FAERS Safety Report 21950214 (Version 1)
Quarter: 2023Q1

REPORT INFORMATION
  Report Type: Spontaneous
  Country: US (occurrence: None)
  Receive Date: 20230202
  Receipt Date: 20230202
  Transmission Date: 20230418
  Serious: Yes (Other)
  Sender: FDA-Public Use
  Company Number: None

PATIENT
  Age: 52 Year
  Sex: Female
  Weight: 67.5 kg

DRUGS (2)
  1. SALONPAS PAIN RELIEF [Suspect]
     Active Substance: MENTHOL\METHYL SALICYLATE
     Indication: Rib fracture
     Dosage: OTHER QUANTITY : 1 PATCH(ES);?FREQUENCY : EVERY 8 HOURS;?
     Route: 062
  2. PROPRANOLOL [Concomitant]
     Active Substance: PROPRANOLOL HYDROCHLORIDE

REACTIONS (2)
  - Application site pain [None]
  - Burns second degree [None]

NARRATIVE: CASE EVENT DATE: 20230130
